FAERS Safety Report 4892518-2 (Version None)
Quarter: 2006Q1

REPORT INFORMATION
  Report Type: 
  Country: None (occurrence: None)
  Receive Date: 20060126
  Receipt Date: 20060120
  Transmission Date: 20060701
  Serious: Yes (Hospitalization)
  Sender: FDA-Public Use
  Company Number: US-BRISTOL-MYERS SQUIBB COMPANY-13256631

PATIENT
  Age: 61 Year
  Sex: Male
  Weight: 106 kg

DRUGS (3)
  1. CETUXIMAB [Suspect]
     Indication: SQUAMOUS CELL CARCINOMA
     Dosage: THERAPY INITIATED 30-NOV-2005, TOTAL DOSE ADMINISTERED THIS COURSE 1210 MG.
     Dates: start: 20060103, end: 20060103
  2. CISPLATIN [Suspect]
     Indication: SQUAMOUS CELL CARCINOMA
     Dosage: THERAPY INITIATED 30-NOV-2005, TOTAL DOSE ADMINISTERED THIS COURSE 165 MG.
     Dates: start: 20060103, end: 20060103
  3. RADIATION THERAPY [Suspect]
     Indication: SQUAMOUS CELL CARCINOMA
     Dosage: EXTERNAL BEAM,IMRT.TOTAL DOSE TO DATE 50 GY. NUMBER OF FRACTIONS 25, NUMBER OF ELAPSED DAYS 36.
     Dates: start: 20060117, end: 20060117

REACTIONS (2)
  - ATRIAL FIBRILLATION [None]
  - INFECTION [None]
